FAERS Safety Report 10701601 (Version 1)
Quarter: 2015Q1

REPORT INFORMATION
  Report Type: Spontaneous
  Country: US (occurrence: US)
  Receive Date: 20150109
  Receipt Date: 20150109
  Transmission Date: 20150721
  Serious: Yes (Death)
  Sender: FDA-Public Use
  Company Number: US-PFIZER INC-2015007091

PATIENT
  Age: 47 Year
  Sex: Male

DRUGS (3)
  1. BUPRENORPHINE/NALOXONE [Suspect]
     Active Substance: BUPRENORPHINE\NALOXONE
     Dosage: UNK
     Route: 060
  2. ALPRAZOLAM. [Suspect]
     Active Substance: ALPRAZOLAM
     Dosage: UNK
     Route: 048
  3. AMITRIPTYLINE [Suspect]
     Active Substance: AMITRIPTYLINE
     Dosage: UNK
     Route: 048

REACTIONS (4)
  - Completed suicide [Fatal]
  - Respiratory arrest [Fatal]
  - Cardiac arrest [Fatal]
  - Exposure via ingestion [None]

NARRATIVE: CASE EVENT DATE: 2013
